FAERS Safety Report 5129273-7 (Version None)
Quarter: 2006Q4

REPORT INFORMATION
  Report Type: 
  Country: None (occurrence: None)
  Receive Date: 20061011
  Receipt Date: 20060925
  Transmission Date: 20070319
  Serious: Yes (Hospitalization)
  Sender: FDA-Public Use
  Company Number: 6026015

PATIENT
  Age: 95 Year
  Sex: Male

DRUGS (6)
  1. LEVOTHYROXINE SODIUM [Suspect]
     Indication: DRUG USE FOR UNKNOWN INDICATION
     Dosage: 75 MCG (75 MCG, 1 IN 1 D) ORAL
     Route: 048
  2. ALPRAZOLAM [Suspect]
     Indication: DRUG USE FOR UNKNOWN INDICATION
     Dosage: 0,25 MG (0, 25 MG, 1 D), ORAL
     Route: 048
  3. LOVENOX [Suspect]
     Indication: DRUG USE FOR UNKNOWN INDICATION
     Dosage: 40 MG/0.4 ML, SUBCUTANEOUS
     Route: 058
     Dates: start: 20060814, end: 20060822
  4. TARDYFERON (80 MG, TABLET) (FERROUS SULFATE) [Suspect]
     Indication: DRUG USE FOR UNKNOWN INDICATION
     Dosage: ORAL
     Route: 048
     Dates: end: 20060822
  5. TRANSIPEG (ORAL SOLUTION) (MACROGOL) [Suspect]
     Indication: DRUG USE FOR UNKNOWN INDICATION
     Dosage: 2, 95GM (2,95 GM)
     Route: 048
     Dates: end: 20060822
  6. SINTROM (TABLET) (ACENOCOUMAROL) [Suspect]
     Dates: end: 20060813

REACTIONS (10)
  - ANAEMIA [None]
  - DIARRHOEA [None]
  - DRUG INTERACTION [None]
  - DUODENAL ULCER [None]
  - FALL [None]
  - GASTRIC ULCER [None]
  - GASTROINTESTINAL HAEMORRHAGE [None]
  - HAEMATOMA [None]
  - LOSS OF CONSCIOUSNESS [None]
  - MALAISE [None]
